FAERS Safety Report 7296448-0 (Version None)
Quarter: 2011Q1

REPORT INFORMATION
  Report Type: 
  Country: None (occurrence: None)
  Receive Date: 20110216
  Receipt Date: 20110207
  Transmission Date: 20110831
  Serious: Yes (Other)
  Sender: FDA-Public Use
  Company Number: TW-ROCHE-757880

PATIENT

DRUGS (2)
  1. PEGINTERFERON ALFA-2A [Suspect]
     Route: 058
  2. RIBAVIRIN [Suspect]
     Route: 048

REACTIONS (20)
  - INFLUENZA [None]
  - DIARRHOEA [None]
  - LEUKOPENIA [None]
  - DECREASED APPETITE [None]
  - NAUSEA [None]
  - ANXIETY [None]
  - THYROID FUNCTION TEST ABNORMAL [None]
  - IRRITABILITY [None]
  - ALOPECIA [None]
  - PERITONITIS BACTERIAL [None]
  - BACTERIAL INFECTION [None]
  - INSOMNIA [None]
  - RASH [None]
  - MENINGITIS [None]
  - LIP AND/OR ORAL CAVITY CANCER [None]
  - DEPRESSION [None]
  - INFLUENZA LIKE ILLNESS [None]
  - ANAEMIA [None]
  - ASTHMA [None]
  - THROMBOCYTOPENIA [None]
